FAERS Safety Report 4499050-9 (Version None)
Quarter: 2004Q4

REPORT INFORMATION
  Report Type: 
  Country: None (occurrence: None)
  Receive Date: 20041110
  Receipt Date: 20041110
  Transmission Date: 20050328
  Serious: Yes (Death)
  Sender: FDA-Public Use
  Company Number: None

PATIENT
  Age: 67 Year
  Sex: Female
  Weight: 73 kg

DRUGS (1)
  1. PACLITAXEL [Suspect]
     Indication: BREAST CANCER
     Dosage: 175 MG/M2   Q 3 WEEKS  INTRAVENOUS
     Route: 042
     Dates: start: 20040611, end: 20040722

REACTIONS (1)
  - CARDIO-RESPIRATORY ARREST [None]
